FAERS Safety Report 8575460-5 (Version None)
Quarter: 2012Q3

REPORT INFORMATION
  Report Type: 
  Country: None (occurrence: None)
  Receive Date: 20120807
  Receipt Date: 20120801
  Transmission Date: 20120928
  Serious: Yes (Hospitalization)
  Sender: FDA-Public Use
  Company Number: PHHY2012IT067038

PATIENT
  Sex: Female

DRUGS (6)
  1. KEPPRA [Concomitant]
     Indication: EPILEPSY
     Dosage: 1500 MG, UNK
     Route: 048
  2. ACETAMINOPHEN [Concomitant]
     Indication: PYREXIA
  3. VALSARTAN  AND HYDROCHLOROTHIAZIDE [Suspect]
     Indication: HYPERTENSION
     Route: 048
     Dates: start: 20110101, end: 20120707
  4. VALPROATE SODIUM [Suspect]
     Indication: EPILEPSY
     Dosage: 750 MG, DAILY
     Route: 048
     Dates: start: 20120101
  5. VALPROATE SODIUM [Suspect]
     Dosage: 500 MG , DAILY
     Route: 048
  6. ASPIRIN [Concomitant]

REACTIONS (2)
  - HYPONATRAEMIA [None]
  - ANTICONVULSANT DRUG LEVEL INCREASED [None]
